FAERS Safety Report 23625257 (Version 3)
Quarter: 2025Q1

REPORT INFORMATION
  Report Type: Spontaneous
  Country: US (occurrence: US)
  Receive Date: 20240313
  Receipt Date: 20250117
  Transmission Date: 20250409
  Serious: Yes (Death)
  Sender: ENDO
  Company Number: US-ENDO PHARMACEUTICALS INC-2023-006397

PATIENT
  Sex: Female

DRUGS (6)
  1. ENDOCET [Suspect]
     Active Substance: ACETAMINOPHEN\OXYCODONE HYDROCHLORIDE
     Indication: Surgery
     Route: 065
  2. HYDROCODONE BITARTRATE AND ACETAMINOPHEN [Suspect]
     Active Substance: ACETAMINOPHEN\HYDROCODONE BITARTRATE
     Indication: Surgery
     Route: 065
  3. ACETAMINOPHEN\OXYCODONE HYDROCHLORIDE [Suspect]
     Active Substance: ACETAMINOPHEN\OXYCODONE HYDROCHLORIDE
     Indication: Surgery
     Route: 065
  4. PERCOCET [Suspect]
     Active Substance: ACETAMINOPHEN\OXYCODONE HYDROCHLORIDE
     Indication: Surgery
     Route: 065
  5. OPANA [Suspect]
     Active Substance: OXYMORPHONE HYDROCHLORIDE
     Indication: Surgery
     Route: 065
  6. ZYDONE [Suspect]
     Active Substance: ACETAMINOPHEN\HYDROCODONE BITARTRATE
     Indication: Surgery
     Route: 065

REACTIONS (2)
  - Overdose [Fatal]
  - Dependence [Fatal]

NARRATIVE: CASE EVENT DATE: 20150819
